FAERS Safety Report 9444835 (Version 1)
Quarter: 2013Q3

REPORT INFORMATION
  Report Type: Spontaneous
  Country: US (occurrence: None)
  Receive Date: 20130802
  Receipt Date: 20130802
  Transmission Date: 20140515
  Serious: Yes (Other)
  Sender: FDA-Public Use
  Company Number: US-MACLEODS PHARMA-000118

PATIENT
  Age: 61 Year
  Sex: Male
  Weight: 116 kg

DRUGS (1)
  1. LOSARTAN(LOSARTAN) [Suspect]
     Indication: HYPERTENSION
     Dosage: 100.00-MG-1.00 TIMES / PER-1.0DAYS

REACTIONS (3)
  - Thrombocytopenia [None]
  - Epistaxis [None]
  - Gingival bleeding [None]
